FAERS Safety Report 13417625 (Version 3)
Quarter: 2017Q4

REPORT INFORMATION
  Report Type: Report from Study
  Country: US (occurrence: US)
  Receive Date: 20170407
  Receipt Date: 20171004
  Transmission Date: 20180320
  Serious: Yes (Hospitalization)
  Sender: FDA-Public Use
  Company Number: US-ACTELION-A-US2017-152056

PATIENT
  Age: 52 Year
  Sex: Male

DRUGS (17)
  1. LAMICTAL [Concomitant]
     Active Substance: LAMOTRIGINE
     Dosage: 250 MG, BID
  2. MORPHINE [Concomitant]
     Active Substance: MORPHINE
     Dosage: 2 MG, Q4HRS
     Dates: end: 20170505
  3. POTASSIUM [Concomitant]
     Active Substance: POTASSIUM
     Dosage: 20 MEQ, QD
     Dates: end: 20170505
  4. DOBUTAMINE [Concomitant]
     Active Substance: DOBUTAMINE\DOBUTAMINE HYDROCHLORIDE
     Dosage: 3 MCG/KG/MIN
     Dates: end: 20170902
  5. TRACLEER [Suspect]
     Active Substance: BOSENTAN
     Indication: PULMONARY ARTERIAL HYPERTENSION
     Dosage: 125 MG, BID
     Route: 048
     Dates: start: 20140203, end: 20170901
  6. LEVOTHYROXINE. [Concomitant]
     Active Substance: LEVOTHYROXINE
     Dosage: 25 MCG, QD
  7. COLACE [Concomitant]
     Active Substance: DOCUSATE SODIUM
  8. SILDENAFIL. [Concomitant]
     Active Substance: SILDENAFIL
     Dosage: 20 MG, BID
     Dates: end: 20170902
  9. BUMEX [Concomitant]
     Active Substance: BUMETANIDE
     Dosage: 3 MG, QD
     Dates: end: 20170902
  10. FLOLAN [Concomitant]
     Active Substance: EPOPROSTENOL SODIUM
     Dosage: 47 NG/KG, PER MIN
     Route: 042
     Dates: end: 20170902
  11. ASCORBIC ACID. [Concomitant]
     Active Substance: ASCORBIC ACID
  12. NORCO [Concomitant]
     Active Substance: ACETAMINOPHEN\HYDROCODONE BITARTRATE
  13. SENOKOT [Concomitant]
     Active Substance: SENNOSIDES
  14. SILDENAFIL. [Concomitant]
     Active Substance: SILDENAFIL
     Indication: PULMONARY ARTERIAL HYPERTENSION
     Dosage: 20 MG, TID
  15. FLOLAN [Concomitant]
     Active Substance: EPOPROSTENOL SODIUM
     Dosage: 35 NG/KG, PER MIN
     Route: 042
  16. AMIODARONE [Concomitant]
     Active Substance: AMIODARONE
     Dosage: 200 MG, QD
     Dates: end: 20170902
  17. ZOFRAN [Concomitant]
     Active Substance: ONDANSETRON HYDROCHLORIDE

REACTIONS (10)
  - Heart and lung transplant [Unknown]
  - Pneumonia [Unknown]
  - Right ventricular failure [Unknown]
  - Respiratory tract infection bacterial [Unknown]
  - Respiratory tract infection viral [Unknown]
  - Blood bilirubin increased [Unknown]
  - Fluid retention [Recovering/Resolving]
  - Cough [Unknown]
  - Concomitant disease progression [Unknown]
  - Haemoptysis [Recovered/Resolved]

NARRATIVE: CASE EVENT DATE: 20170325
